FAERS Safety Report 24706788 (Version 3)
Quarter: 2024Q4

REPORT INFORMATION
  Report Type: Spontaneous
  Country: DE (occurrence: DE)
  Receive Date: 20241206
  Receipt Date: 20241227
  Transmission Date: 20250115
  Serious: Yes (Hospitalization, Other)
  Sender: JOHNSON AND JOHNSON
  Company Number: DE-VIIV HEALTHCARE-DE2024EME148693

PATIENT
  Age: 45 Year
  Sex: Male
  Weight: 80 kg

DRUGS (2)
  1. RILPIVIRINE [Suspect]
     Active Substance: RILPIVIRINE
     Indication: HIV infection
     Dosage: UNK 900 MG/3 ML (RIGHT GLUTEAL)
     Route: 030
     Dates: start: 20241104
  2. VOCABRIA [Suspect]
     Active Substance: CABOTEGRAVIR SODIUM
     Indication: HIV infection
     Dosage: UNK 600 MG/3 ML (LEFT GLUTEAL)
     Dates: start: 20241104

REACTIONS (1)
  - Abscess limb [Recovered/Resolved]

NARRATIVE: CASE EVENT DATE: 20241108
